FAERS Safety Report 4730006-4 (Version None)
Quarter: 2005Q3

REPORT INFORMATION
  Report Type: 
  Country: None (occurrence: None)
  Receive Date: 20050728
  Receipt Date: 20050713
  Transmission Date: 20060218
  Serious: Yes (Other)
  Sender: FDA-Public Use
  Company Number: 2005S1000213

PATIENT
  Sex: Male

DRUGS (3)
  1. ACITRETIN (ACITRETIN) [Suspect]
     Dosage: PO
     Route: 048
  2. ACITRETIN (ACITRETIN) [Suspect]
     Dosage: PO
     Route: 048
  3. ETANERCEPT (ETANERCEPT) (25 MG/ML) [Suspect]
     Dosage: 25 MG; BIW; SC
     Route: 058
     Dates: start: 20050101

REACTIONS (1)
  - CONVULSION [None]
